FAERS Safety Report 21379795 (Version 1)
Quarter: 2022Q3

REPORT INFORMATION
  Report Type: Report from Study
  Country: NL (occurrence: NL)
  Receive Date: 20220927
  Receipt Date: 20220927
  Transmission Date: 20221026
  Serious: Yes (Hospitalization)
  Sender: FDA-Public Use
  Company Number: NL-ROCHE-3156049

PATIENT

DRUGS (3)
  1. OXALIPLATIN [Suspect]
     Active Substance: OXALIPLATIN
     Indication: Colorectal cancer
     Dosage: UNK
     Route: 065
     Dates: start: 20210624, end: 20210709
  2. FLUOROURACIL [Suspect]
     Active Substance: FLUOROURACIL
     Indication: Colorectal cancer
     Dosage: UNK
     Route: 065
     Dates: start: 20210624, end: 20210709
  3. BEVACIZUMAB [Suspect]
     Active Substance: BEVACIZUMAB
     Indication: Colorectal cancer
     Dosage: UNK, SOLUTION FOR INFUSION
     Route: 065
     Dates: start: 20210624, end: 20210709

REACTIONS (1)
  - Ankle fracture [Recovered/Resolved]

NARRATIVE: CASE EVENT DATE: 20210724
